FAERS Safety Report 8553723 (Version 4)
Quarter: 2012Q4

REPORT INFORMATION
  Report Type: Report from Study
  Country: DE (occurrence: DE)
  Receive Date: 20120509
  Receipt Date: 20121113
  Transmission Date: 20130627
  Serious: Yes (Hospitalization)
  Sender: FDA-Public Use
  Company Number: DE-ABBOTT-12P-062-0932611-00

PATIENT
  Age: 64 Year
  Sex: Female

DRUGS (4)
  1. HUMIRA [Suspect]
     Indication: RHEUMATOID ARTHRITIS
     Route: 058
     Dates: start: 20070301, end: 20120420
  2. HUMIRA [Suspect]
     Route: 058
     Dates: start: 20120726, end: 20120815
  3. NAPROXEN [Concomitant]
     Indication: PRODUCT USED FOR UNKNOWN INDICATION
  4. MORPHINE [Concomitant]
     Indication: ANALGESIC THERAPY
     Route: 062

REACTIONS (2)
  - Hepatic enzyme abnormal [Recovered/Resolved]
  - Neoplasm malignant [Not Recovered/Not Resolved]
